FAERS Safety Report 7791320-1 (Version None)
Quarter: 2011Q4

REPORT INFORMATION
  Report Type: 
  Country: None (occurrence: None)
  Receive Date: 20111003
  Receipt Date: 20110920
  Transmission Date: 20120403
  Serious: No
  Sender: FDA-Public Use
  Company Number: US-BIOGENIDEC-2011BI036218

PATIENT
  Sex: Female

DRUGS (2)
  1. AVONEX [Suspect]
     Indication: MULTIPLE SCLEROSIS
     Route: 030
     Dates: start: 20030424
  2. AVONEX [Suspect]
     Route: 030
     Dates: end: 20080701

REACTIONS (3)
  - VARICOSE VEIN [None]
  - FALL [None]
  - LOSS OF CONTROL OF LEGS [None]
